FAERS Safety Report 13446479 (Version 2)
Quarter: 2017Q4

REPORT INFORMATION
  Report Type: Spontaneous
  Country: US (occurrence: US)
  Receive Date: 20170417
  Receipt Date: 20171208
  Transmission Date: 20180320
  Serious: No
  Sender: FDA-Public Use
  Company Number: PHEH2017US010532

PATIENT
  Sex: Female

DRUGS (2)
  1. LENVIMA [Suspect]
     Active Substance: LENVATINIB
     Indication: LUNG NEOPLASM MALIGNANT
     Dosage: 10 MG, QD
     Route: 048
     Dates: start: 20170303, end: 20171206
  2. AFINITOR [Suspect]
     Active Substance: EVEROLIMUS
     Indication: LUNG NEOPLASM MALIGNANT
     Route: 065

REACTIONS (9)
  - Drug ineffective [Unknown]
  - Gingival pain [Unknown]
  - Diarrhoea [Unknown]
  - Hyperkeratosis [Unknown]
  - Limb discomfort [Unknown]
  - Hypertension [Unknown]
  - Ear pain [Unknown]
  - Facial pain [Unknown]
  - Product use in unapproved indication [Unknown]
